FAERS Safety Report 15006612 (Version 1)
Quarter: 2018Q2

REPORT INFORMATION
  Report Type: Report from Study
  Country: US (occurrence: US)
  Receive Date: 20180613
  Receipt Date: 20180613
  Transmission Date: 20180711
  Serious: No
  Sender: FDA-Public Use
  Company Number: US-US WORLDMEDS, LLC-USW201710-001415

PATIENT
  Sex: Male
  Weight: 96.16 kg

DRUGS (10)
  1. SIMVASTATIN. [Concomitant]
     Active Substance: SIMVASTATIN
  2. ALLOPURINOL. [Concomitant]
     Active Substance: ALLOPURINOL
  3. FENOFIBRATE. [Concomitant]
     Active Substance: FENOFIBRATE
  4. ENALAPRIL [Concomitant]
     Active Substance: ENALAPRIL
  5. TERBINAFINE. [Concomitant]
     Active Substance: TERBINAFINE
  6. APOKYN [Suspect]
     Active Substance: APOMORPHINE HYDROCHLORIDE
     Indication: PARKINSON^S DISEASE
     Route: 058
     Dates: start: 20170707
  7. PRAMIPEXOLE. [Concomitant]
     Active Substance: PRAMIPEXOLE
  8. RASAGILINE. [Concomitant]
     Active Substance: RASAGILINE
  9. TIGAN [Concomitant]
     Active Substance: TRIMETHOBENZAMIDE HYDROCHLORIDE
  10. CARBIDOPA/LEVODOPA [Concomitant]
     Active Substance: CARBIDOPA\LEVODOPA

REACTIONS (5)
  - Musculoskeletal pain [Not Recovered/Not Resolved]
  - Nausea [Not Recovered/Not Resolved]
  - Drug ineffective [Not Recovered/Not Resolved]
  - Neck pain [Not Recovered/Not Resolved]
  - Myalgia [Not Recovered/Not Resolved]
